FAERS Safety Report 14268613 (Version 2)
Quarter: 2020Q4

REPORT INFORMATION
  Report Type: Spontaneous
  Country: PR (occurrence: US)
  Receive Date: 20171211
  Receipt Date: 20201014
  Transmission Date: 20210113
  Serious: Yes (Hospitalization)
  Sender: FDA-Public Use
  Company Number: PR-JNJFOC-20171122862

PATIENT
  Age: 50 Year
  Sex: Male

DRUGS (1)
  1. XARELTO [Suspect]
     Active Substance: RIVAROXABAN
     Indication: DEEP VEIN THROMBOSIS
     Route: 048
     Dates: start: 20160526, end: 20160603

REACTIONS (1)
  - Compartment syndrome [Unknown]

NARRATIVE: CASE EVENT DATE: 20160529
